FAERS Safety Report 20695017 (Version 5)
Quarter: 2022Q2

REPORT INFORMATION
  Report Type: Spontaneous
  Country: ES (occurrence: ES)
  Receive Date: 20220411
  Receipt Date: 20220509
  Transmission Date: 20220721
  Serious: Yes (Other)
  Sender: FDA-Public Use
  Company Number: ES-BAYER-2022A048725

PATIENT
  Age: 42 Year
  Sex: Female

DRUGS (2)
  1. MIRENA [Suspect]
     Active Substance: LEVONORGESTREL
     Indication: Intermenstrual bleeding
     Dosage: 20?G/DAY
     Route: 015
     Dates: start: 20211021
  2. IVABRADINE [Concomitant]
     Active Substance: IVABRADINE

REACTIONS (22)
  - Device dislocation [None]
  - Genital haemorrhage [None]
  - Facial paralysis [None]
  - Diarrhoea haemorrhagic [None]
  - Monoplegia [None]
  - Medical device pain [None]
  - Abdominal pain lower [None]
  - Migraine [None]
  - Hypoaesthesia [None]
  - Tachycardia [None]
  - Amenorrhoea [None]
  - Hypomenorrhoea [None]
  - Device defective [None]
  - Constipation [None]
  - Abdominal pain upper [None]
  - Back pain [None]
  - Device difficult to use [None]
  - Fatigue [None]
  - Malaise [None]
  - Abdominal pain [None]
  - Hyperhidrosis [None]
  - Hernia [None]

NARRATIVE: CASE EVENT DATE: 20220208
